FAERS Safety Report 10690294 (Version 3)
Quarter: 2015Q1

REPORT INFORMATION
  Report Type: Spontaneous
  Country: IT (occurrence: IT)
  Receive Date: 20150105
  Receipt Date: 20150331
  Transmission Date: 20150720
  Serious: Yes (Life-Threatening)
  Sender: FDA-Public Use
  Company Number: IT-PFIZER INC-2014362983

PATIENT
  Age: 45 Year
  Sex: Female

DRUGS (4)
  1. LYRICA [Suspect]
     Active Substance: PREGABALIN
     Indication: ANXIETY
     Dosage: 150 MG, UNK
     Route: 048
  2. CITALOPRAM [Concomitant]
     Active Substance: CITALOPRAM HYDROBROMIDE
     Indication: ABNORMAL BEHAVIOUR
     Route: 048
  3. LYRICA [Suspect]
     Active Substance: PREGABALIN
     Dosage: 5400 MG, (36 CAPSULES OF 150 MG)
     Route: 048
     Dates: start: 20141214, end: 20141214
  4. SEROQUEL [Concomitant]
     Active Substance: QUETIAPINE FUMARATE
     Indication: ABNORMAL BEHAVIOUR
     Route: 048

REACTIONS (4)
  - Intentional overdose [Unknown]
  - Toxicity to various agents [Unknown]
  - Respiratory arrest [Unknown]
  - Drug abuse [Unknown]

NARRATIVE: CASE EVENT DATE: 20141214
